FAERS Safety Report 4796129-9 (Version None)
Quarter: 2005Q4

REPORT INFORMATION
  Report Type: 
  Country: None (occurrence: None)
  Receive Date: 20051007
  Receipt Date: 20050926
  Transmission Date: 20060501
  Serious: Yes (Other)
  Sender: FDA-Public Use
  Company Number: US-2005-013601

PATIENT
  Age: 47 Year
  Sex: Male
  Weight: 72.6 kg

DRUGS (10)
  1. BETASERON (INTERFERON BETA - 1B) INJECTION, 250UG [Suspect]
     Indication: SECONDARY PROGRESSIVE MULTIPLE SCLEROSIS
     Dosage: 6 MIU, EVERY 2D, SUBCUTANEOUS
     Route: 058
     Dates: start: 20050303, end: 20050712
  2. LEXAPRO [Concomitant]
  3. TYLENOL (CAPLET) [Concomitant]
  4. VITAMIN B COMPLEX CAP [Concomitant]
  5. ASCORBIC ACID [Concomitant]
  6. CORAL CALCIUM (CALCIUM) [Concomitant]
  7. VITAMIN B-12 [Concomitant]
  8. FISH OIL (FISH OIL) [Concomitant]
  9. BIOTIN [Concomitant]
  10. SUN-CRAILLA [Concomitant]

REACTIONS (11)
  - DEVICE FAILURE [None]
  - DIZZINESS [None]
  - FOREIGN BODY TRAUMA [None]
  - INJECTION SITE CELLULITIS [None]
  - INJECTION SITE INDURATION [None]
  - INJECTION SITE MASS [None]
  - INJECTION SITE NECROSIS [None]
  - INJECTION SITE PAIN [None]
  - INJECTION SITE SCAR [None]
  - INJECTION SITE WARMTH [None]
  - NAUSEA [None]
